FAERS Safety Report 12978905 (Version 2)
Quarter: 2017Q1

REPORT INFORMATION
  Report Type: Spontaneous
  Country: JP (occurrence: JP)
  Receive Date: 20161128
  Receipt Date: 20170109
  Transmission Date: 20170428
  Serious: Yes (Life-Threatening, Hospitalization, Other)
  Sender: FDA-Public Use
  Company Number: JP-PFIZER INC-2016544186

PATIENT
  Age: 48 Year
  Sex: Male

DRUGS (5)
  1. CHAMPIX 0.5MG [Suspect]
     Active Substance: VARENICLINE TARTRATE
     Indication: SMOKING CESSATION THERAPY
     Dosage: 0.5 MG, 1X/DAY
     Route: 048
     Dates: start: 20161102, end: 20161104
  2. MARZULENE [Concomitant]
     Active Substance: SODIUM GUALENATE
     Dosage: 0.67 G, 3X/DAY
     Route: 048
     Dates: start: 20100930, end: 20161104
  3. PRAVASTATIN. [Concomitant]
     Active Substance: PRAVASTATIN
     Indication: HYPERLIPIDAEMIA
     Dosage: 5 MG, 1X/DAY
     Route: 048
     Dates: start: 20080731, end: 20161104
  4. ALOSITOL [Concomitant]
     Active Substance: ALLOPURINOL
     Indication: HYPERURICAEMIA
     Dosage: 100 MG, 2X/DAY
     Route: 048
     Dates: start: 20080731, end: 20161104
  5. RABEPRAZOLE [Concomitant]
     Active Substance: RABEPRAZOLE
     Dosage: 10 MG, 1X/DAY
     Route: 048
     Dates: start: 20100930, end: 20161104

REACTIONS (2)
  - Ileus [Recovered/Resolved]
  - Pyrexia [Recovered/Resolved]

NARRATIVE: CASE EVENT DATE: 20161103
